FAERS Safety Report 10422608 (Version 5)
Quarter: 2014Q4

REPORT INFORMATION
  Report Type: Spontaneous
  Country: SA (occurrence: SA)
  Receive Date: 20140901
  Receipt Date: 20141117
  Transmission Date: 20150528
  Serious: Yes (Other)
  Sender: FDA-Public Use
  Company Number: SA-PFIZER INC-2014015399

PATIENT
  Age: 21 Year
  Sex: Female

DRUGS (3)
  1. RISPERDAL [Concomitant]
     Active Substance: RISPERIDONE
     Indication: MENTAL DISORDER
     Dosage: 1 MG, UNK
  2. LYRICA [Suspect]
     Active Substance: PREGABALIN
     Dosage: 900 MG, DAILY
     Route: 048
  3. DEPAKINE [Concomitant]
     Active Substance: VALPROATE SODIUM
     Indication: MENTAL DISORDER
     Dosage: 1500 UNK, UNK

REACTIONS (3)
  - Drug abuse [Unknown]
  - Aggression [Unknown]
  - Abnormal behaviour [Unknown]
